FAERS Safety Report 15077590 (Version 3)
Quarter: 2019Q1

REPORT INFORMATION
  Report Type: Report from Study
  Country: FR (occurrence: FR)
  Receive Date: 20180627
  Receipt Date: 20190115
  Transmission Date: 20190417
  Serious: Yes (Death, Life-Threatening, Hospitalization, Other)
  Sender: FDA-Public Use
  Company Number: FR-MYLANLABS-2018M1045480

PATIENT
  Age: 72 Year
  Sex: Female

DRUGS (15)
  1. APIXABAN [Suspect]
     Active Substance: APIXABAN
     Indication: PRODUCT USED FOR UNKNOWN INDICATION
     Dosage: UNK
     Route: 065
  2. TOUJEO [Concomitant]
     Active Substance: INSULIN GLARGINE
     Indication: DIABETES MELLITUS
     Dosage: 34 INTERNATIONAL UNIT, QD
     Route: 058
     Dates: end: 20180103
  3. LANSOPRAZOL [Concomitant]
     Active Substance: LANSOPRAZOLE
     Indication: PROPHYLAXIS AGAINST GASTROINTESTINAL ULCER
     Dosage: 15 MILLIGRAM, QD
     Route: 048
     Dates: end: 20180103
  4. CLOPIDOGREL [Suspect]
     Active Substance: CLOPIDOGREL BISULFATE
     Indication: PRODUCT USED FOR UNKNOWN INDICATION
     Dosage: 75 MILLIGRAM, QD
     Route: 048
     Dates: start: 20170208, end: 20180103
  5. PREGABALIN. [Concomitant]
     Active Substance: PREGABALIN
     Indication: EPILEPSY
     Dosage: 100 MILLIGRAM, QD
     Route: 048
     Dates: end: 20180103
  6. METFORMINE                         /00082701/ [Concomitant]
     Active Substance: METFORMIN HYDROCHLORIDE
     Indication: DIABETES MELLITUS
     Dosage: 1000 MILLIGRAM, QD
     Route: 048
     Dates: end: 20180103
  7. ACETYLSALICYLIC ACID [Suspect]
     Active Substance: ASPIRIN
     Indication: PRODUCT USED FOR UNKNOWN INDICATION
     Dosage: 75 MG, DAILY
     Route: 048
     Dates: end: 20180103
  8. BISOPROLOL [Concomitant]
     Active Substance: BISOPROLOL
     Indication: CARDIAC DISORDER
     Dosage: 2.5 MG, DAILY
     Route: 048
     Dates: end: 20180103
  9. TERBUTALINE [Concomitant]
     Active Substance: TERBUTALINE
     Indication: ASTHMA
     Dosage: 15 MG, PAIN, 15 MG, DAILY
     Route: 050
     Dates: end: 20180103
  10. FUROSEMIDE. [Concomitant]
     Active Substance: FUROSEMIDE
     Indication: CARDIAC DISORDER
     Dosage: 40 MILLIGRAM, QD
     Route: 048
     Dates: end: 20180103
  11. RAMIPRIL. [Concomitant]
     Active Substance: RAMIPRIL
     Indication: CARDIAC DISORDER
     Dosage: 2.5 MG, DAILY
     Route: 048
     Dates: end: 20180103
  12. BISOPROLOL [Concomitant]
     Active Substance: BISOPROLOL
     Indication: CARDIOMYOPATHY
  13. FUROSEMIDE. [Concomitant]
     Active Substance: FUROSEMIDE
     Indication: CARDIOMYOPATHY
  14. ATORVASTATINE                      /01326101/ [Concomitant]
     Active Substance: ATORVASTATIN
     Indication: HYPERCHOLESTEROLAEMIA
     Dosage: 40 MG, DAILY
     Route: 048
     Dates: end: 20180103
  15. RAMIPRIL. [Concomitant]
     Active Substance: RAMIPRIL
     Indication: CARDIOMYOPATHY

REACTIONS (4)
  - Hypovolaemic shock [Unknown]
  - Peritoneal neoplasm [Fatal]
  - Influenza [Fatal]
  - Acute kidney injury [Unknown]

NARRATIVE: CASE EVENT DATE: 20171205
